FAERS Safety Report 7307614-X (Version None)
Quarter: 2011Q1

REPORT INFORMATION
  Report Type: 
  Country: None (occurrence: None)
  Receive Date: 20110223
  Receipt Date: 20110223
  Transmission Date: 20110831
  Serious: Yes (Life-Threatening, Disabling)
  Sender: FDA-Public Use
  Company Number: None

PATIENT
  Sex: Female
  Weight: 99.7913 kg

DRUGS (3)
  1. LOVENOX [Concomitant]
  2. WALGREEN ALCOHOL SWABS 70% ISOPROPYL ALCOHOL TRIAD GROUP [Suspect]
     Indication: THERAPEUTIC SKIN CARE TOPICAL
     Dosage: 1 WIPE 1 DAILY TOP
     Route: 061
     Dates: start: 20100312, end: 20100318
  3. WALGREEN ALCOHOL SWABS 70% ISOPROPYL ALCOHOL TRIAD GROUP [Suspect]

REACTIONS (3)
  - INJECTION SITE INFECTION [None]
  - SKIN REACTION [None]
  - PRODUCT QUALITY ISSUE [None]
